FAERS Safety Report 20246320 (Version 5)
Quarter: 2022Q2

REPORT INFORMATION
  Report Type: Report from Study
  Country: US (occurrence: US)
  Receive Date: 20211229
  Receipt Date: 20220408
  Transmission Date: 20220721
  Serious: No
  Sender: FDA-Public Use
  Company Number: US-NOVARTISTESTPH-NVSC2021US298599

PATIENT
  Sex: Female

DRUGS (1)
  1. OMNITROPE [Suspect]
     Active Substance: SOMATROPIN
     Indication: Blood growth hormone
     Dosage: 10 MG, QD
     Route: 065
     Dates: start: 20211218

REACTIONS (4)
  - Incorrect dose administered [Unknown]
  - Product leakage [Unknown]
  - Device leakage [Unknown]
  - Sensory disturbance [Unknown]
